FAERS Safety Report 4386872-8 (Version None)
Quarter: 2004Q2

REPORT INFORMATION
  Report Type: 
  Country: None (occurrence: None)
  Receive Date: 20040629
  Receipt Date: 20040615
  Transmission Date: 20050107
  Serious: Yes (Hospitalization, Other)
  Sender: FDA-Public Use
  Company Number: 2004S1001388

PATIENT
  Age: 34 Year
  Sex: Female
  Weight: 77.1115 kg

DRUGS (8)
  1. EXTENDED PHENYTOIN SODIUM [Suspect]
     Indication: GRAND MAL CONVULSION
     Dosage: 300 MG BID, THEN 600 MG X 1, THEN 200 MG BID, ORAL
     Route: 048
     Dates: start: 20041002, end: 20040521
  2. EXTENDED PHENYTOIN SODIUM [Suspect]
     Indication: PETIT MAL EPILEPSY
     Dosage: 300 MG BID, THEN 600 MG X 1, THEN 200 MG BID, ORAL
     Route: 048
     Dates: start: 20041002, end: 20040521
  3. EXTENDED PHENYTOIN SODIUM [Suspect]
     Indication: GRAND MAL CONVULSION
     Dosage: 300 MG BID, THEN 600 MG X 1, THEN 200 MG BID, ORAL
     Route: 048
     Dates: start: 20040601
  4. EXTENDED PHENYTOIN SODIUM [Suspect]
     Indication: PETIT MAL EPILEPSY
     Dosage: 300 MG BID, THEN 600 MG X 1, THEN 200 MG BID, ORAL
     Route: 048
     Dates: start: 20040601
  5. TEGRETOL [Suspect]
     Indication: GRAND MAL CONVULSION
     Dosage: 600 MG BID, ORAL
     Route: 048
     Dates: start: 19730101
  6. TEGRETOL [Suspect]
     Indication: PETIT MAL EPILEPSY
     Dosage: 600 MG BID, ORAL
     Route: 048
     Dates: start: 19730101
  7. CARBAMAZEPINE [Concomitant]
  8. PHENOBARBITAL TAB [Concomitant]

REACTIONS (8)
  - ABASIA [None]
  - ASTHENIA [None]
  - BALANCE DISORDER [None]
  - CEREBROVASCULAR ACCIDENT [None]
  - CONVULSION [None]
  - DRUG LEVEL BELOW THERAPEUTIC [None]
  - DRUG WITHDRAWAL SYNDROME [None]
  - IMPAIRED WORK ABILITY [None]
